FAERS Safety Report 7627627-8 (Version None)
Quarter: 2011Q3

REPORT INFORMATION
  Report Type: 
  Country: None (occurrence: None)
  Receive Date: 20110721
  Receipt Date: 20110712
  Transmission Date: 20111222
  Serious: Yes (Hospitalization, Other)
  Sender: FDA-Public Use
  Company Number: US-BAXTER-2011BH021434

PATIENT
  Sex: Female

DRUGS (2)
  1. DIANEAL [Suspect]
     Indication: PERITONEAL DIALYSIS
     Route: 033
  2. UNSPECIFIED MEDICATION [Concomitant]
     Indication: IMPAIRED GASTRIC EMPTYING

REACTIONS (3)
  - PROTEIN TOTAL DECREASED [None]
  - IMPAIRED GASTRIC EMPTYING [None]
  - DIABETIC FOOT [None]
